FAERS Safety Report 8698440 (Version 2)
Quarter: 2013Q1

REPORT INFORMATION
  Report Type: Spontaneous
  Country: JP (occurrence: None)
  Receive Date: 20120717
  Receipt Date: 20121005
  Transmission Date: 20140127
  Serious: Yes (Other)
  Sender: FDA-Public Use
  Company Number: JP-2012-15759

PATIENT
  Sex: 0

DRUGS (1)
  1. SAMSCA [Suspect]
     Dosage: ORAL
     Route: 048

REACTIONS (1)
  - Interstitial lung disease [None]
